FAERS Safety Report 4966119-1 (Version None)
Quarter: 2006Q2

REPORT INFORMATION
  Report Type: 
  Country: None (occurrence: None)
  Receive Date: 20060403
  Receipt Date: 20060322
  Transmission Date: 20061013
  Serious: Yes (Other)
  Sender: FDA-Public Use
  Company Number: 2006BH006832

PATIENT

DRUGS (5)
  1. DEXAMETHASONE [Suspect]
     Indication: MULTIPLE MYELOMA
     Dosage: 40 MG
  2. THALIDOMIDE (THALIDOMIDE) [Suspect]
     Indication: MULTIPLE MYELOMA
     Dosage: 100 MG; CONTINUOUS
  3. CAELYX (R) (NO PREF. NAME) [Suspect]
     Indication: MULTIPLE MYELOMA
     Dosage: 40 MG/M**2; EVERY 4 WK
  4. WARFARIN [Concomitant]
  5. CIPROFLOXACIN HCL [Concomitant]

REACTIONS (1)
  - NEUTROPENIA [None]
